FAERS Safety Report 14503057 (Version 1)
Quarter: 2018Q1

REPORT INFORMATION
  Report Type: Spontaneous
  Country: US (occurrence: US)
  Receive Date: 20180208
  Receipt Date: 20180208
  Transmission Date: 20180509
  Serious: No
  Sender: FDA-Public Use
  Company Number: US-PFIZER INC-2017405239

PATIENT
  Age: 74 Year
  Sex: Female
  Weight: 99.77 kg

DRUGS (12)
  1. LYRICA [Suspect]
     Active Substance: PREGABALIN
     Indication: BACK PAIN
  2. ALLOPURINOL. [Concomitant]
     Active Substance: ALLOPURINOL
     Dosage: 200 MG, DAILY (100MG=2, TAB, PO, DAILY)
     Route: 048
  3. OMEPRAZOLE. [Concomitant]
     Active Substance: OMEPRAZOLE
     Dosage: 20 MG, DAILY
     Route: 048
  4. LYRICA [Suspect]
     Active Substance: PREGABALIN
     Indication: TYPE 2 DIABETES MELLITUS
     Dosage: 25 MG, 2X/DAY (1 CAP PO BID)
     Route: 048
  5. LYRICA [Suspect]
     Active Substance: PREGABALIN
     Indication: NEUROPATHY PERIPHERAL
     Dosage: 25 MG, 2X/DAY
     Route: 048
     Dates: start: 20180122, end: 20180129
  6. CENTURY [Concomitant]
     Dosage: 1 DF, DAILY
     Route: 048
  7. LISINOPRIL. [Concomitant]
     Active Substance: LISINOPRIL
     Indication: HYPERTENSION
     Dosage: 20 MG, DAILY
     Route: 048
  8. ACETAMINOPHEN. [Concomitant]
     Active Substance: ACETAMINOPHEN
     Indication: PAIN
     Dosage: 500 MG, AS NEEDED (1 TAB 1 PO, Q4H/NOT TO EXCEED 3000MG/DAY)
     Route: 048
  9. ATENOLOL-CHLORTHALIDONE [Concomitant]
     Active Substance: ATENOLOL\CHLORTHALIDONE
     Dosage: 1 DF, DAILY [ATENOLOL 50 MG-CHLORTHALIDONE 25 MG]
     Route: 048
  10. ALBUTEROL. [Concomitant]
     Active Substance: ALBUTEROL
     Indication: WHEEZING
     Dosage: UNK UNK, AS NEEDED (90MCG/INH , 2, PUFF, INH, Q4H)
  11. VITAMIN D3 [Concomitant]
     Active Substance: CHOLECALCIFEROL
     Dosage: 2000 IU, DAILY
     Route: 048
  12. TRAMADOL. [Concomitant]
     Active Substance: TRAMADOL
     Indication: PAIN
     Dosage: 25 MG, AS NEEDED (50MG=25= 0.5, TAB, PO, Q4H)
     Route: 048

REACTIONS (5)
  - Urinary incontinence [Recovering/Resolving]
  - Headache [Recovered/Resolved]
  - Gait disturbance [Recovered/Resolved with Sequelae]
  - Constipation [Recovering/Resolving]
  - Peripheral swelling [Not Recovered/Not Resolved]

NARRATIVE: CASE EVENT DATE: 201801
